FAERS Safety Report 22628217 (Version 1)
Quarter: 2023Q2

REPORT INFORMATION
  Report Type: Spontaneous
  Country: IN (occurrence: IN)
  Receive Date: 20230622
  Receipt Date: 20230622
  Transmission Date: 20230721
  Serious: Yes (Other)
  Sender: FDA-Public Use
  Company Number: IN-MACLEODS PHARMACEUTICALS US LTD-MAC2023041608

PATIENT

DRUGS (1)
  1. SILDENAFIL [Suspect]
     Active Substance: SILDENAFIL
     Indication: Performance enhancing product use
     Dosage: 2 DOSAGE FORM, SINGLE
     Route: 065

REACTIONS (6)
  - Visual impairment [Recovering/Resolving]
  - Flushing [Recovering/Resolving]
  - Dyspepsia [Recovering/Resolving]
  - Headache [Recovering/Resolving]
  - Substance use [Unknown]
  - Prescription drug used without a prescription [Unknown]
